FAERS Safety Report 9532951 (Version 1)
Quarter: 2013Q3

REPORT INFORMATION
  Report Type: Spontaneous
  Country: US (occurrence: None)
  Receive Date: 20130916
  Receipt Date: 20130916
  Transmission Date: 20140515
  Serious: Yes (Other)
  Sender: FDA-Public Use
  Company Number: 2013AQ000038

PATIENT
  Age: 65 Year
  Sex: Female

DRUGS (1)
  1. DOXYCYCLINE [Suspect]
     Indication: ROSACEA

REACTIONS (5)
  - Gastric disorder [None]
  - Gastrooesophageal reflux disease [None]
  - Gastrointestinal mucosal necrosis [None]
  - Gastritis erosive [None]
  - Biopsy stomach abnormal [None]
